FAERS Safety Report 4845898-8 (Version None)
Quarter: 2005Q4

REPORT INFORMATION
  Report Type: 
  Country: None (occurrence: None)
  Receive Date: 20051206
  Receipt Date: 20051130
  Transmission Date: 20060501
  Serious: Yes (Hospitalization)
  Sender: FDA-Public Use
  Company Number: NL-AVENTIS-200520584GDDC

PATIENT
  Age: 15 Year
  Sex: Male

DRUGS (5)
  1. TELFAST [Suspect]
     Route: 048
  2. FLUTICASONE [Concomitant]
     Route: 045
  3. SALMETEROL / FLUTICASONE [Concomitant]
     Indication: ASTHMA
     Route: 055
  4. AZITHROMYCIN [Concomitant]
     Dates: start: 20051006, end: 20051008
  5. AZITHROMYCIN [Concomitant]
     Dates: start: 20051114, end: 20051116

REACTIONS (2)
  - TACHYCARDIA [None]
  - VENTRICULAR ARRHYTHMIA [None]
